FAERS Safety Report 18681263 (Version 1)
Quarter: 2020Q4

REPORT INFORMATION
  Report Type: Spontaneous
  Country: US (occurrence: US)
  Receive Date: 20201229
  Receipt Date: 20201229
  Transmission Date: 20210114
  Serious: Yes (Hospitalization)
  Sender: FDA-Public Use
  Company Number: None

PATIENT
  Sex: Female
  Weight: 122.7 kg

DRUGS (16)
  1. BAMLANIVIMAB FOR EUA [Suspect]
     Active Substance: BAMLANIVIMAB
     Indication: COVID-19
     Dates: start: 20201217, end: 20201217
  2. SECUKINUMAB. [Concomitant]
     Active Substance: SECUKINUMAB
  3. AMITRIPTYLINE [Concomitant]
     Active Substance: AMITRIPTYLINE
  4. ISONIAZID. [Concomitant]
     Active Substance: ISONIAZID
  5. OXCARBAZEPINE. [Concomitant]
     Active Substance: OXCARBAZEPINE
  6. TORSEMIDE. [Concomitant]
     Active Substance: TORSEMIDE
  7. AZITHROMYCIN ANHYDROUS. [Concomitant]
     Active Substance: AZITHROMYCIN ANHYDROUS
  8. ERENUMAB [Concomitant]
     Active Substance: ERENUMAB
  9. TRAZODONE [Concomitant]
     Active Substance: TRAZODONE HYDROCHLORIDE
  10. LEVOTHYROXINE. [Concomitant]
     Active Substance: LEVOTHYROXINE
  11. LOSARTAN. [Concomitant]
     Active Substance: LOSARTAN
  12. CYANOCOBALAMIN. [Concomitant]
     Active Substance: CYANOCOBALAMIN
  13. GABAPENTIN. [Concomitant]
     Active Substance: GABAPENTIN
  14. METOPROLOL. [Concomitant]
     Active Substance: METOPROLOL
  15. ISOSORBIDE. [Concomitant]
     Active Substance: ISOSORBIDE
  16. SPIRONOLACTONE. [Concomitant]
     Active Substance: SPIRONOLACTONE

REACTIONS (6)
  - Metastatic neoplasm [None]
  - Dyspnoea [None]
  - Lung opacity [None]
  - Gait inability [None]
  - COVID-19 [None]
  - Pulmonary embolism [None]
